FAERS Safety Report 23059714 (Version 1)
Quarter: 2023Q4

REPORT INFORMATION
  Report Type: Spontaneous
  Country: US (occurrence: US)
  Receive Date: 20231012
  Receipt Date: 20231012
  Transmission Date: 20240109
  Serious: No
  Sender: FDA-Public Use
  Company Number: US-009507513-2309USA004222

PATIENT
  Age: 64 Year
  Sex: Female

DRUGS (4)
  1. KEYTRUDA [Suspect]
     Active Substance: PEMBROLIZUMAB
     Indication: Triple negative breast cancer
     Dosage: UNKNOWN DOSE/EVERY 21 DAYS
     Route: 042
     Dates: start: 20230403, end: 20230904
  2. ZOLOFT [Concomitant]
     Active Substance: SERTRALINE HYDROCHLORIDE
  3. ANASTROZOLE [Concomitant]
     Active Substance: ANASTROZOLE
  4. CEFADROXIL [Concomitant]
     Active Substance: CEFADROXIL

REACTIONS (5)
  - Decreased appetite [Recovered/Resolved]
  - Nausea [Unknown]
  - Fatigue [Unknown]
  - Endocrine test abnormal [Unknown]
  - Decreased appetite [Recovered/Resolved]

NARRATIVE: CASE EVENT DATE: 20230801
